FAERS Safety Report 24784332 (Version 2)
Quarter: 2025Q1

REPORT INFORMATION
  Report Type: Spontaneous
  Country: CN (occurrence: CN)
  Receive Date: 20241227
  Receipt Date: 20250106
  Transmission Date: 20250408
  Serious: Yes (Other)
  Sender: MERCK
  Company Number: CN-009507513-2412CHN008830

PATIENT
  Age: 58 Year
  Sex: Male
  Weight: 64 kg

DRUGS (2)
  1. KEYTRUDA [Suspect]
     Active Substance: PEMBROLIZUMAB
     Indication: Renal cancer
     Dosage: 200 MG, EVERY 21 DAYS
     Route: 041
     Dates: start: 20240107, end: 20241211
  2. LENVATINIB MESYLATE [Suspect]
     Active Substance: LENVATINIB MESYLATE
     Indication: Renal cancer
     Dosage: 12 MG, QD
     Route: 048
     Dates: start: 20240107, end: 20241211

REACTIONS (8)
  - Perineal ulceration [Recovering/Resolving]
  - Blister [Recovering/Resolving]
  - Ulcer [Recovering/Resolving]
  - Scab [Recovering/Resolving]
  - Skin ulcer [Recovering/Resolving]
  - Mouth ulceration [Recovering/Resolving]
  - Rash vesicular [Recovering/Resolving]
  - Product use issue [Unknown]

NARRATIVE: CASE EVENT DATE: 20240101
